FAERS Safety Report 20102895 (Version 2)
Quarter: 2021Q4

REPORT INFORMATION
  Report Type: Spontaneous
  Country: CN (occurrence: None)
  Receive Date: 20211123
  Receipt Date: 20211208
  Transmission Date: 20220304
  Serious: Yes (Other)
  Sender: FDA-Public Use
  Company Number: 2021A817982

PATIENT
  Age: 81 Year
  Sex: Female

DRUGS (4)
  1. TAGRISSO [Suspect]
     Active Substance: OSIMERTINIB
     Indication: Lung adenocarcinoma
     Route: 048
     Dates: start: 202005
  2. TAGRISSO [Suspect]
     Active Substance: OSIMERTINIB
     Indication: Lung adenocarcinoma
     Route: 048
     Dates: start: 202105
  3. TAGRISSO [Suspect]
     Active Substance: OSIMERTINIB
     Indication: Lung adenocarcinoma
     Dosage: 80MG TOGETHER WITH MEALS IN THE LUNCH TIME.
     Route: 048
     Dates: start: 20211114
  4. CATEQUENTINIB [Concomitant]
     Active Substance: CATEQUENTINIB

REACTIONS (5)
  - Malignant neoplasm progression [Unknown]
  - Drug resistance [Unknown]
  - Dysphagia [Unknown]
  - Cognitive disorder [Unknown]
  - Wrong technique in product usage process [Unknown]
